FAERS Safety Report 26044026 (Version 1)
Quarter: 2025Q4

REPORT INFORMATION
  Report Type: Spontaneous
  Country: GB (occurrence: GB)
  Receive Date: 20251114
  Receipt Date: 20251114
  Transmission Date: 20260117
  Serious: Yes (Life-Threatening, Hospitalization, Other)
  Sender: JUBILANT
  Company Number: GB-JUBILANT CADISTA PHARMACEUTICALS-2022JUB00209

PATIENT
  Age: 43 Year
  Sex: Female

DRUGS (3)
  1. OLANZAPINE [Suspect]
     Active Substance: OLANZAPINE
     Indication: Product used for unknown indication
     Dosage: UNK,UNK
     Route: 048
  2. DIAZEPAM [Suspect]
     Active Substance: DIAZEPAM
     Indication: Product used for unknown indication
     Dosage: UNK,UNK
     Route: 048
  3. MIRTAZAPINE [Suspect]
     Active Substance: MIRTAZAPINE
     Indication: Product used for unknown indication
     Dosage: UNK,UNK
     Route: 048

REACTIONS (6)
  - Cardiac failure congestive [Recovered/Resolved]
  - Circulatory collapse [Recovered/Resolved]
  - Serotonin syndrome [Recovered/Resolved]
  - Blood lactic acid increased [Recovered/Resolved]
  - Intentional overdose [Recovered/Resolved]
  - Ventricular tachycardia [Recovered/Resolved]
